FAERS Safety Report 8303782-1 (Version None)
Quarter: 2012Q2

REPORT INFORMATION
  Report Type: 
  Country: None (occurrence: None)
  Receive Date: 20120423
  Receipt Date: 20120410
  Transmission Date: 20120825
  Serious: Yes (Other)
  Sender: FDA-Public Use
  Company Number: PHHY2012KR007900

PATIENT
  Sex: Female
  Weight: 50 kg

DRUGS (3)
  1. PYRIDOXINE HCL [Concomitant]
  2. EXJADE [Suspect]
     Indication: IRON OVERLOAD
     Dosage: 1000 MG, UNK
     Route: 048
     Dates: start: 20070928
  3. STEROIDS NOS [Concomitant]

REACTIONS (1)
  - OSTEOPOROSIS [None]
